FAERS Safety Report 10411110 (Version 2)
Quarter: 2014Q3

REPORT INFORMATION
  Report Type: Report from Study
  Country: BR (occurrence: BR)
  Receive Date: 20140826
  Receipt Date: 20140908
  Transmission Date: 20150326
  Serious: Yes (Death, Hospitalization, Other)
  Sender: FDA-Public Use
  Company Number: PHHY2014BR106455

PATIENT
  Sex: Male

DRUGS (2)
  1. FORASEQ [Suspect]
     Active Substance: BUDESONIDE\FORMOTEROL FUMARATE
     Indication: DYSPNOEA
     Dosage: UNK UKN, DAILY
     Route: 055
     Dates: end: 2013
  2. FORASEQ [Suspect]
     Active Substance: BUDESONIDE\FORMOTEROL FUMARATE
     Indication: EMPHYSEMA

REACTIONS (9)
  - Asthenia [Unknown]
  - Dyspnoea [Fatal]
  - Malaise [Unknown]
  - Metastasis [Unknown]
  - Syncope [Unknown]
  - Respiratory failure [Fatal]
  - Fall [Recovered/Resolved]
  - Gastrointestinal carcinoma [Unknown]
  - Red blood cell count decreased [Recovered/Resolved]

NARRATIVE: CASE EVENT DATE: 2010
